FAERS Safety Report 13402668 (Version 4)
Quarter: 2017Q3

REPORT INFORMATION
  Report Type: Spontaneous
  Country: US (occurrence: US)
  Receive Date: 20170404
  Receipt Date: 20170804
  Transmission Date: 20171127
  Serious: Yes (Other)
  Sender: FDA-Public Use
  Company Number: US-ACTELION-A-NJ2017-151999

PATIENT
  Age: 74 Year
  Sex: Male

DRUGS (4)
  1. AQUAPHOR [Concomitant]
     Active Substance: PETROLATUM
  2. VALCHLOR [Suspect]
     Active Substance: MECHLORETHAMINE
     Indication: MYCOSIS FUNGOIDES
     Dosage: UNK UNK, THIN FILM TO AFFECTED SKIN QD
     Route: 061
     Dates: start: 20160621
  3. KEFLEX [Concomitant]
     Active Substance: CEPHALEXIN
  4. TARGRETIN [Concomitant]
     Active Substance: BEXAROTENE

REACTIONS (6)
  - Herpes zoster [Unknown]
  - Dry skin [Unknown]
  - Aneurysm repair [Unknown]
  - Scab [Unknown]
  - Aneurysm [Unknown]
  - Eyelid margin crusting [Not Recovered/Not Resolved]
